FAERS Safety Report 15429016 (Version 1)
Quarter: 2018Q3

REPORT INFORMATION
  Report Type: Other
  Country: US (occurrence: US)
  Receive Date: 20180926
  Receipt Date: 20180926
  Transmission Date: 20181010
  Serious: Yes (Hospitalization)
  Sender: FDA-Public Use
  Company Number: US-LAURUS LABS LIMITED-201800198

PATIENT
  Age: 22 Year
  Sex: Female

DRUGS (1)
  1. METFORMIN [Suspect]
     Active Substance: METFORMIN HYDROCHLORIDE
     Route: 048

REACTIONS (22)
  - Gastrointestinal sounds abnormal [Recovered/Resolved]
  - Hyperglycaemia [Recovered/Resolved]
  - Lactic acidosis [Recovered/Resolved]
  - Hypotension [Recovered/Resolved]
  - Hypothermia [Recovered/Resolved]
  - Intentional overdose [Unknown]
  - Hypertension [Recovered/Resolved]
  - Urine output increased [Recovered/Resolved]
  - Tachycardia [Recovered/Resolved]
  - Hypopnoea [Recovered/Resolved]
  - Lethargy [Recovered/Resolved]
  - Electrocardiogram QT prolonged [Recovered/Resolved]
  - Electrocardiogram QRS complex prolonged [Recovered/Resolved]
  - Flushing [Recovered/Resolved]
  - Delirium [Recovered/Resolved]
  - Anhidrosis [Recovered/Resolved]
  - Hypoglycaemia [Recovered/Resolved]
  - Tachypnoea [Recovered/Resolved]
  - Vasoplegia syndrome [Recovered/Resolved]
  - Nausea [Recovered/Resolved]
  - Mydriasis [Recovered/Resolved]
  - Unresponsive to stimuli [Recovered/Resolved]
